FAERS Safety Report 23828039 (Version 9)
Quarter: 2024Q4

REPORT INFORMATION
  Report Type: Spontaneous
  Country: US (occurrence: US)
  Receive Date: 20240507
  Receipt Date: 20241231
  Transmission Date: 20250115
  Serious: Yes (Other)
  Sender: BRISTOL-MYERS SQUIBB COMPANY
  Company Number: US-BRISTOL-MYERS SQUIBB COMPANY-2024-069281

PATIENT
  Age: 67 Year
  Sex: Female

DRUGS (4)
  1. LENALIDOMIDE [Suspect]
     Active Substance: LENALIDOMIDE
     Indication: Plasma cell myeloma
     Dosage: TAKE 1 CAPSULE BY MOUTH DAILY FOR 14 DAYS, FOLLOWED BY 1 WEEK OFF CYCLE REPEATED EVERY 21 DAYS
     Route: 048
     Dates: start: 20240425
  2. LENALIDOMIDE [Suspect]
     Active Substance: LENALIDOMIDE
     Indication: Anaemia
     Dosage: TAKE 1 CAPSULE BY MOUTH EVERY DAY FOR 14 DAYS FOLLOWED BY 1 WEEK OFF CYCLE REPEATED EVERY 21 DAYS
     Route: 048
  3. LENALIDOMIDE [Suspect]
     Active Substance: LENALIDOMIDE
     Dosage: TAKE 1 CAPSULE BY MOUTH EVERY DAY FOR 14 DAYS FOLLOWED BY 1 WEEK OFF. CYCLE REPEATED EVERY 21 DAYS
     Route: 048
  4. LENALIDOMIDE [Suspect]
     Active Substance: LENALIDOMIDE
     Dosage: TAKE 1 CAPSULE BY MOUTH EVERY DAY FOR 14 DAYS FOLLOWED BY 1 WEEK OFF. CYCLE REPEATED EVERY 21 DAYS
     Route: 048

REACTIONS (27)
  - Fatigue [Recovering/Resolving]
  - Pain [Recovering/Resolving]
  - White blood cell count decreased [Recovering/Resolving]
  - Haemoglobin decreased [Recovering/Resolving]
  - Platelet count decreased [Recovering/Resolving]
  - Muscular weakness [Recovering/Resolving]
  - Tremor [Recovering/Resolving]
  - Hypersomnia [Recovering/Resolving]
  - Decreased appetite [Not Recovered/Not Resolved]
  - Diarrhoea [Recovering/Resolving]
  - Abdominal discomfort [Recovering/Resolving]
  - Headache [Recovering/Resolving]
  - Lacrimation increased [Recovering/Resolving]
  - Blood pressure increased [Recovering/Resolving]
  - Blood cholesterol increased [Recovering/Resolving]
  - Diabetes mellitus [Recovering/Resolving]
  - Off label use [Unknown]
  - Asthenia [Not Recovered/Not Resolved]
  - Cough [Not Recovered/Not Resolved]
  - Nausea [Not Recovered/Not Resolved]
  - Vomiting [Unknown]
  - Neuropathy peripheral [Recovered/Resolved]
  - Vertigo [Not Recovered/Not Resolved]
  - Balance disorder [Not Recovered/Not Resolved]
  - Dizziness [Recovered/Resolved]
  - Fall [Recovered/Resolved]
  - Paraesthesia [Not Recovered/Not Resolved]
